FAERS Safety Report 9734416 (Version 3)
Quarter: 2014Q1

REPORT INFORMATION
  Report Type: Spontaneous
  Country: SE (occurrence: SE)
  Receive Date: 20131206
  Receipt Date: 20140130
  Transmission Date: 20141002
  Serious: Yes (Other)
  Sender: FDA-Public Use
  Company Number: PHHY2013SE137666

PATIENT
  Age: 85 Year
  Sex: Male

DRUGS (1)
  1. LEUPRORELIN SANDOZ [Suspect]
     Indication: PROSTATE CANCER
     Dosage: 1 DF, Q3MO
     Route: 058

REACTIONS (2)
  - Injection site haemorrhage [Recovered/Resolved]
  - Drug dispensing error [Recovered/Resolved]
